FAERS Safety Report 12634562 (Version 4)
Quarter: 2016Q4

REPORT INFORMATION
  Report Type: Report from Study
  Country: None (occurrence: CA)
  Receive Date: 20160808
  Receipt Date: 20161116
  Transmission Date: 20170207
  Serious: Yes (Other)
  Sender: FDA-Public Use
  Company Number: CA-ABBVIE-16K-028-1692535-00

PATIENT
  Sex: Male
  Weight: 93.07 kg

DRUGS (4)
  1. HUMIRA [Suspect]
     Active Substance: ADALIMUMAB
     Route: 058
     Dates: start: 20160714
  2. HUMIRA [Suspect]
     Active Substance: ADALIMUMAB
     Route: 058
  3. HUMIRA [Suspect]
     Active Substance: ADALIMUMAB
     Route: 058
     Dates: start: 2016
  4. HUMIRA [Suspect]
     Active Substance: ADALIMUMAB
     Indication: CROHN^S DISEASE
     Route: 058
     Dates: start: 20151123

REACTIONS (5)
  - Large intestinal stenosis [Unknown]
  - Bowel movement irregularity [Recovering/Resolving]
  - Intestinal obstruction [Recovering/Resolving]
  - Drug level decreased [Not Recovered/Not Resolved]
  - Back pain [Recovering/Resolving]

NARRATIVE: CASE EVENT DATE: 2016
